FAERS Safety Report 9004677 (Version 1)
Quarter: 2013Q1

REPORT INFORMATION
  Report Type: Spontaneous
  Country: US (occurrence: None)
  Receive Date: 20130103
  Receipt Date: 20130103
  Transmission Date: 20140127
  Serious: Yes (Life-Threatening, Hospitalization)
  Sender: FDA-Public Use
  Company Number: None

PATIENT
  Age: 9 Year
  Sex: Male
  Weight: 23.59 kg

DRUGS (1)
  1. FLOVENT [Suspect]
     Indication: ASTHMA
     Dosage: 2 PUFFS  BID  INHAL
     Route: 055
     Dates: start: 20100201, end: 20121011

REACTIONS (14)
  - Growth retardation [None]
  - Weight decreased [None]
  - Hypophagia [None]
  - Influenza [None]
  - Nausea [None]
  - Vomiting [None]
  - Pyrexia [None]
  - Headache [None]
  - Mental status changes [None]
  - Influenza B virus test positive [None]
  - Weight gain poor [None]
  - Decreased appetite [None]
  - Blood cortisol decreased [None]
  - Adrenocortical insufficiency acute [None]
